FAERS Safety Report 6464349-3 (Version None)
Quarter: 2009Q4

REPORT INFORMATION
  Report Type: 
  Country: None (occurrence: None)
  Receive Date: 20091201
  Receipt Date: 20091118
  Transmission Date: 20100525
  Serious: Yes (Hospitalization)
  Sender: FDA-Public Use
  Company Number: US-ELI_LILLY_AND_COMPANY-US200911005049

PATIENT
  Weight: 79.365 kg

DRUGS (3)
  1. CYMBALTA [Suspect]
     Indication: DEPRESSION
     Dosage: 60 MG, DAILY (1/D)
     Dates: start: 20090101
  2. COUMADIN [Concomitant]
  3. LIPITOR [Concomitant]

REACTIONS (3)
  - ANXIETY [None]
  - FALL [None]
  - FEMUR FRACTURE [None]
